FAERS Safety Report 7151983-0 (Version None)
Quarter: 2010Q4

REPORT INFORMATION
  Report Type: 
  Country: None (occurrence: None)
  Receive Date: 20101211
  Receipt Date: 20101202
  Transmission Date: 20110411
  Serious: Yes (Other)
  Sender: FDA-Public Use
  Company Number: JP-PFIZER INC-2010116214

PATIENT
  Age: 70 Year
  Sex: Male

DRUGS (5)
  1. LYRICA [Suspect]
     Indication: NEURALGIA
     Dosage: 150 MG/DAY
     Route: 048
     Dates: start: 20100901
  2. HALCION [Interacting]
     Indication: INSOMNIA
     Dosage: 0.25 MG/DAY
     Route: 048
  3. PENTAZOCINE LACTATE [Concomitant]
     Indication: PAIN
     Dosage: UNK
     Route: 048
  4. CELTECT [Concomitant]
     Dosage: UNK
     Route: 048
  5. TETRAMIDE [Concomitant]
     Indication: DEPRESSION
     Dosage: UNK
     Route: 048

REACTIONS (6)
  - DRUG INTERACTION [None]
  - FACIAL PARESIS [None]
  - FEELING ABNORMAL [None]
  - INSOMNIA [None]
  - SOMNOLENCE [None]
  - VISUAL ACUITY REDUCED [None]
